FAERS Safety Report 8984433 (Version 1)
Quarter: 2012Q4

REPORT INFORMATION
  Report Type: 
  Country: GR (occurrence: GR)
  Receive Date: 20121226
  Receipt Date: 20121226
  Transmission Date: 20130627
  Serious: Yes (Other)
  Sender: FDA-Public Use
  Company Number: GR-PFIZER INC-2012325631

PATIENT
  Age: 78 Year
  Sex: Female
  Weight: 65 kg

DRUGS (5)
  1. LIPITOR [Suspect]
     Indication: DYSLIPIDAEMIA
     Dosage: 1 DF (20 mg), once daily
     Route: 048
     Dates: start: 2008, end: 20120311
  2. RYTMONORM [Interacting]
     Indication: EXTRASYSTOLES
     Dosage: 150 mg, twice daily
     Route: 048
     Dates: start: 201202, end: 20120311
  3. RYTMONORM [Interacting]
     Indication: FIBRILLATION
  4. CARVEPEN [Interacting]
     Indication: CORONARY ARTERY DISEASE
     Dosage: 0.5 DF, twice daily
     Route: 048
     Dates: start: 2010
  5. BONVIVA [Interacting]
     Indication: OSTEOPOROSIS
     Dosage: 1 DF (150 mg), monthly
     Route: 048
     Dates: start: 2010, end: 2012

REACTIONS (2)
  - Drug interaction [Recovering/Resolving]
  - Cholestasis [Recovering/Resolving]
